FAERS Safety Report 6781519-5 (Version None)
Quarter: 2010Q2

REPORT INFORMATION
  Report Type: 
  Country: None (occurrence: None)
  Receive Date: 20100621
  Receipt Date: 20100611
  Transmission Date: 20101027
  Serious: Yes (Other)
  Sender: FDA-Public Use
  Company Number: US-ROCHE-709910

PATIENT
  Sex: Male
  Weight: 5.6 kg

DRUGS (1)
  1. VESANOID [Suspect]
     Route: 048
     Dates: start: 20100525

REACTIONS (1)
  - PSYCHOTIC DISORDER [None]
